FAERS Safety Report 24689311 (Version 2)
Quarter: 2025Q2

REPORT INFORMATION
  Report Type: Report from Study
  Country: US (occurrence: US)
  Receive Date: 20241203
  Receipt Date: 20250408
  Transmission Date: 20250717
  Serious: Yes (Other)
  Sender: BIOGEN
  Company Number: US-BIOGEN-2024BI01292058

PATIENT
  Sex: Female

DRUGS (2)
  1. VUMERITY [Suspect]
     Active Substance: DIROXIMEL FUMARATE
     Indication: Multiple sclerosis
     Route: 050
     Dates: start: 20241030
  2. VUMERITY [Suspect]
     Active Substance: DIROXIMEL FUMARATE
     Route: 050
     Dates: start: 20241030

REACTIONS (7)
  - Diabetes mellitus [Unknown]
  - Gastrointestinal disorder [Unknown]
  - Fatigue [Unknown]
  - Paraesthesia [Unknown]
  - Product dose omission issue [Unknown]
  - Rash erythematous [Unknown]
  - Flushing [Unknown]
